FAERS Safety Report 4566370-9 (Version None)
Quarter: 2005Q1

REPORT INFORMATION
  Report Type: 
  Country: None (occurrence: None)
  Receive Date: 20050126
  Receipt Date: 20050126
  Transmission Date: 20050727
  Serious: No
  Sender: FDA-Public Use
  Company Number: None

PATIENT
  Age: 29 Year
  Sex: Female
  Weight: 50.8029 kg

DRUGS (2)
  1. ZANTAC 150 [Suspect]
     Indication: GASTRITIS
     Dosage: 150MG   BID   ORAL
     Route: 048
     Dates: start: 20050112, end: 20050112
  2. ZANTAC 150 [Suspect]
     Indication: GASTROOESOPHAGEAL REFLUX DISEASE
     Dosage: 150MG   BID   ORAL
     Route: 048
     Dates: start: 20050112, end: 20050112

REACTIONS (3)
  - HEADACHE [None]
  - HYPERSENSITIVITY [None]
  - SWELLING FACE [None]
